FAERS Safety Report 14562085 (Version 1)
Quarter: 2018Q1

REPORT INFORMATION
  Report Type: Spontaneous
  Country: US (occurrence: US)
  Receive Date: 20180222
  Receipt Date: 20180222
  Transmission Date: 20180509
  Serious: No
  Sender: FDA-Public Use
  Company Number: US-BAYER-2018-035575

PATIENT
  Age: 50 Year
  Sex: Female
  Weight: 74 kg

DRUGS (3)
  1. DULCOLAX PICOSULFAT [Concomitant]
     Active Substance: SODIUM PICOSULFATE
     Dosage: 4 DF, UNK
  2. MIRALAX [Suspect]
     Active Substance: POLYETHYLENE GLYCOL 3350
     Indication: COLONOSCOPY
     Dosage: 238 G, ONCE
     Route: 048
     Dates: start: 20180221, end: 20180221
  3. ZYRTEC [Concomitant]
     Active Substance: CETIRIZINE HYDROCHLORIDE
     Dosage: UNK

REACTIONS (2)
  - Off label use [Unknown]
  - Product use in unapproved indication [Unknown]
